FAERS Safety Report 13647998 (Version 5)
Quarter: 2019Q3

REPORT INFORMATION
  Report Type: Report from Study
  Country: US (occurrence: US)
  Receive Date: 20170613
  Receipt Date: 20190807
  Transmission Date: 20191004
  Serious: Yes (Hospitalization, Other)
  Sender: FDA-Public Use
  Company Number: US-AMGEN-USASP2017087088

PATIENT
  Age: 70 Year
  Sex: Female

DRUGS (3)
  1. PROLIA [Suspect]
     Active Substance: DENOSUMAB
     Indication: OSTEOPOROSIS POSTMENOPAUSAL
     Dosage: UNK
     Route: 065
     Dates: start: 201609, end: 201703
  2. PROLIA [Suspect]
     Active Substance: DENOSUMAB
     Dosage: 60 MILLIGRAM
     Route: 065
  3. LEVOTHYROXINE. [Concomitant]
     Active Substance: LEVOTHYROXINE
     Dosage: UNK

REACTIONS (6)
  - Troponin increased [Unknown]
  - Bone density decreased [Unknown]
  - Small intestinal stenosis [Unknown]
  - Small intestinal obstruction [Unknown]
  - Abdominal pain [Unknown]
  - Intentional dose omission [Unknown]

NARRATIVE: CASE EVENT DATE: 201611
